FAERS Safety Report 6026311-4 (Version None)
Quarter: 2008Q4

REPORT INFORMATION
  Report Type: 
  Country: None (occurrence: None)
  Receive Date: 20081230
  Receipt Date: 20081216
  Transmission Date: 20090506
  Serious: Yes (Death, Hospitalization)
  Sender: FDA-Public Use
  Company Number: 8040575

PATIENT
  Age: 14 Month
  Sex: Male

DRUGS (5)
  1. PREDNISOLONE [Suspect]
     Indication: NEPHROTIC SYNDROME
  2. CYCLOSPORINE [Suspect]
     Indication: NEPHROTIC SYNDROME
  3. AMLODIPINE [Concomitant]
  4. ATENOLOL [Concomitant]
  5. ENALAPRIL MALEATE [Concomitant]

REACTIONS (5)
  - DRUG INEFFECTIVE [None]
  - HAEMODIALYSIS [None]
  - NEPHROPATHY TOXIC [None]
  - PANCREATITIS [None]
  - RENAL FAILURE CHRONIC [None]
